FAERS Safety Report 19855835 (Version 1)
Quarter: 2021Q3

REPORT INFORMATION
  Report Type: Spontaneous
  Country: US (occurrence: US)
  Receive Date: 20210920
  Receipt Date: 20210920
  Transmission Date: 20211014
  Serious: Yes (Hospitalization)
  Sender: FDA-Public Use
  Company Number: None

PATIENT
  Age: 77 Year
  Sex: Male

DRUGS (14)
  1. CELECOXIB. [Concomitant]
     Active Substance: CELECOXIB
     Dates: start: 20210525
  2. AMIODARONE [Concomitant]
     Active Substance: AMIODARONE
     Dates: start: 20210812
  3. LISINOPRIL AND HYDROCHLOROTHIAZIDE [Concomitant]
     Active Substance: HYDROCHLOROTHIAZIDE\LISINOPRIL
     Dates: start: 20210111
  4. FOLIC ACID. [Concomitant]
     Active Substance: FOLIC ACID
     Dates: start: 20210323
  5. TAMSULOSIN [Concomitant]
     Active Substance: TAMSULOSIN
     Dates: start: 20210825
  6. LISINOPRIL. [Concomitant]
     Active Substance: LISINOPRIL
     Dates: start: 20210609
  7. AMLODIPINE [Concomitant]
     Active Substance: AMLODIPINE BESYLATE
     Dates: start: 20210917
  8. HUMIRA [Suspect]
     Active Substance: ADALIMUMAB
     Indication: POLYARTHRITIS
     Dosage: ?          OTHER FREQUENCY:EVERY 14 DAYS;?
     Route: 058
     Dates: start: 20180125
  9. METHOTREXATE. [Concomitant]
     Active Substance: METHOTREXATE
     Dates: start: 20210617
  10. BACLOFEN. [Concomitant]
     Active Substance: BACLOFEN
     Dates: start: 20210625
  11. CITALOPRAM [Concomitant]
     Active Substance: CITALOPRAM HYDROBROMIDE
     Dates: start: 20210607
  12. ATORVASTATIN [Concomitant]
     Active Substance: ATORVASTATIN
     Dates: start: 20210811
  13. XARELTO [Concomitant]
     Active Substance: RIVAROXABAN
     Dates: start: 20210917
  14. ESOMEPRA MAG [Concomitant]
     Dates: start: 20210502

REACTIONS (1)
  - Cardiac operation [None]

NARRATIVE: CASE EVENT DATE: 20210701
